FAERS Safety Report 6258133-3 (Version None)
Quarter: 2009Q3

REPORT INFORMATION
  Report Type: 
  Country: None (occurrence: None)
  Receive Date: 20090702
  Receipt Date: 20090702
  Transmission Date: 20100115
  Serious: Yes (Hospitalization)
  Sender: FDA-Public Use
  Company Number: None

PATIENT
  Sex: Male
  Weight: 54.5 kg

DRUGS (3)
  1. CARBOPLATIN [Suspect]
     Dosage: 563 MG
  2. ERBITUX [Suspect]
     Dosage: 425 MG
  3. TAXOL [Suspect]
     Dosage: 255 MG

REACTIONS (7)
  - APHASIA [None]
  - CEREBRAL INFARCTION [None]
  - ENDOCARDITIS [None]
  - FACIAL PALSY [None]
  - HEMIPARESIS [None]
  - PANCYTOPENIA [None]
  - PNEUMONIA [None]
